APPROVED DRUG PRODUCT: INJECTAPAP
Active Ingredient: ACETAMINOPHEN
Strength: 100MG/ML
Dosage Form/Route: INJECTABLE;INJECTION
Application: N017785 | Product #001
Applicant: ORTHO MCNEIL PHARMACEUTICAL INC
Approved: Mar 7, 1986 | RLD: No | RS: No | Type: DISCN